FAERS Safety Report 5980806-8 (Version None)
Quarter: 2008Q4

REPORT INFORMATION
  Report Type: 
  Country: None (occurrence: None)
  Receive Date: 20081205
  Receipt Date: 20080508
  Transmission Date: 20090506
  Serious: No
  Sender: FDA-Public Use
  Company Number: A0726939A

PATIENT
  Age: 59 Year
  Sex: Female

DRUGS (2)
  1. COMMIT [Suspect]
     Dates: start: 20080506, end: 20080506
  2. NICODERM CQ [Suspect]

REACTIONS (6)
  - DRY THROAT [None]
  - HYPOAESTHESIA FACIAL [None]
  - NIGHTMARE [None]
  - PHARYNGEAL HYPOAESTHESIA [None]
  - RETCHING [None]
  - SENSATION OF FOREIGN BODY [None]
